FAERS Safety Report 21088571 (Version 2)
Quarter: 2024Q3

REPORT INFORMATION
  Report Type: Spontaneous
  Country: US (occurrence: US)
  Receive Date: 20220715
  Receipt Date: 20240816
  Transmission Date: 20241017
  Serious: No
  Sender: VERTEX
  Company Number: US-VERTEX PHARMACEUTICALS-2021-011538

PATIENT
  Sex: Female

DRUGS (4)
  1. TRIKAFTA [Suspect]
     Active Substance: ELEXACAFTOR\IVACAFTOR\TEZACAFTOR
     Indication: Cystic fibrosis
     Dosage: 2 ORANGE PILLS
     Route: 048
     Dates: start: 20210205, end: 2021
  2. TRIKAFTA [Suspect]
     Active Substance: ELEXACAFTOR\IVACAFTOR\TEZACAFTOR
     Dosage: ADDED EVENING DOSE
     Route: 048
     Dates: start: 2021, end: 2021
  3. TRIKAFTA [Suspect]
     Active Substance: ELEXACAFTOR\IVACAFTOR\TEZACAFTOR
     Dosage: STOPPED EVENING DOSE
     Route: 048
     Dates: start: 2021, end: 2021
  4. TRIKAFTA [Suspect]
     Active Substance: ELEXACAFTOR\IVACAFTOR\TEZACAFTOR
     Dosage: 1 ORANGE PLL IN THE EVENING
     Route: 048
     Dates: start: 2021, end: 202202

REACTIONS (17)
  - Neuropathy peripheral [Unknown]
  - Cardiovascular disorder [Unknown]
  - Hepatic enzyme increased [Unknown]
  - Depressed mood [Recovering/Resolving]
  - Type 2 diabetes mellitus [Unknown]
  - Productive cough [Unknown]
  - Brain fog [Unknown]
  - Osteoarthritis [Recovered/Resolved]
  - Mitral valve prolapse [Unknown]
  - Blood cholesterol increased [Recovering/Resolving]
  - Heart rate decreased [Recovered/Resolved]
  - Lethargy [Recovering/Resolving]
  - Asthenia [Recovered/Resolved]
  - Somnolence [Unknown]
  - Libido decreased [Unknown]
  - Sleep disorder [Unknown]
  - Sinusitis [Recovered/Resolved]

NARRATIVE: CASE EVENT DATE: 20210101
